FAERS Safety Report 8571396-4 (Version None)
Quarter: 2012Q3

REPORT INFORMATION
  Report Type: 
  Country: None (occurrence: None)
  Receive Date: 20120806
  Receipt Date: 20120731
  Transmission Date: 20120928
  Serious: Yes (Hospitalization)
  Sender: FDA-Public Use
  Company Number: FR-SANOFI-AVENTIS-2012SA026494

PATIENT
  Age: 84 Year
  Sex: Male

DRUGS (7)
  1. NITRODERM [Suspect]
     Route: 062
     Dates: start: 20090101
  2. LASIX [Suspect]
     Route: 048
     Dates: start: 20090101
  3. METHOTREXATE [Suspect]
     Route: 048
     Dates: start: 20010101, end: 20120312
  4. REPAGLINIDE [Suspect]
     Route: 048
     Dates: end: 20120312
  5. POLYETHYLENE GLYCOL [Suspect]
     Route: 048
  6. PREDNISONE TAB [Suspect]
     Route: 048
  7. ALFUZOSIN HYDROCHLORIDE [Suspect]
     Route: 048

REACTIONS (1)
  - PULMONARY ALVEOLAR HAEMORRHAGE [None]
